FAERS Safety Report 5000883-0 (Version None)
Quarter: 2006Q2

REPORT INFORMATION
  Report Type: 
  Country: None (occurrence: None)
  Receive Date: 20060512
  Receipt Date: 20050627
  Transmission Date: 20061013
  Serious: No
  Sender: FDA-Public Use
  Company Number: US-GLAXOSMITHKLINE-A0564290A

PATIENT
  Age: 47 Year
  Sex: Female
  Weight: 57.3 kg

DRUGS (5)
  1. RELAFEN [Suspect]
     Indication: OSTEOARTHRITIS
     Dosage: 500MG PER DAY
     Route: 048
     Dates: start: 20050401, end: 20050506
  2. PLAQUENIL [Concomitant]
     Indication: OSTEOARTHRITIS
     Dosage: 200MG TWICE PER DAY
     Route: 048
     Dates: start: 20000701
  3. FOLIC ACID [Concomitant]
     Route: 048
     Dates: start: 20001101
  4. RENPRESS [Concomitant]
     Dosage: 1TAB PER DAY
     Route: 048
     Dates: start: 19981101
  5. SULFASALAZINE [Concomitant]
     Dosage: 500MG SIX TIMES PER DAY
     Route: 048
     Dates: start: 20001101

REACTIONS (2)
  - SKIN IRRITATION [None]
  - VAGINAL SWELLING [None]
